FAERS Safety Report 9230878 (Version 1)
Quarter: 2013Q2

REPORT INFORMATION
  Report Type: Spontaneous
  Country: FR (occurrence: FR)
  Receive Date: 20130415
  Receipt Date: 20130415
  Transmission Date: 20140414
  Serious: Yes (Hospitalization)
  Sender: FDA-Public Use
  Company Number: PHHY2013FR035360

PATIENT
  Age: 60 Year
  Sex: Male

DRUGS (1)
  1. TASIGNA [Suspect]
     Indication: MYELOID LEUKAEMIA
     Dosage: UNK
     Route: 048
     Dates: start: 20091003, end: 20121029

REACTIONS (1)
  - Coronary artery stenosis [Recovered/Resolved with Sequelae]
